FAERS Safety Report 4490575-9 (Version None)
Quarter: 2004Q4

REPORT INFORMATION
  Report Type: 
  Country: None (occurrence: None)
  Receive Date: 20041102
  Receipt Date: 20040818
  Transmission Date: 20050328
  Serious: Yes (Life-Threatening, Hospitalization)
  Sender: FDA-Public Use
  Company Number: 200416232US

PATIENT
  Sex: Female
  Weight: 90.9 kg

DRUGS (25)
  1. LOVENOX [Suspect]
     Indication: KNEE ARTHROPLASTY
     Route: 058
     Dates: start: 20040701, end: 20040709
  2. ZIAC [Concomitant]
     Dosage: DOSE: NOT PROVIDED
  3. CARDIZEM [Concomitant]
     Dosage: DOSE: NOT PROVIDED
  4. ZOCOR [Concomitant]
     Dosage: DOSE: NOT PROVIDED
  5. MULTI-VITAMINS [Concomitant]
     Dosage: DOSE: NOT PROVIDED
  6. FOLIC ACID [Concomitant]
     Dosage: DOSE: NOT PROVIDED
  7. ASTELIN [Concomitant]
     Dosage: DOSE: NOT PROVIDED
  8. CELEBREX [Concomitant]
     Dosage: DOSE: NOT PROVIDED
  9. METHOTREXATE [Concomitant]
     Dosage: DOSE: NOT PROVIDED
  10. ACIPHEX [Concomitant]
     Dosage: DOSE: NOT PROVIDED
  11. CALCIUM [Concomitant]
     Dosage: DOSE: NOT PROVIDED
  12. PROCRIT [Concomitant]
     Dosage: DOSE UNIT: UNITS
  13. IRON SULFATETHIAMIN COMPOUND TAB [Concomitant]
     Dosage: DOSE: NOT PROVIDED
  14. CHLORAL HYDRATE [Concomitant]
     Route: 048
  15. CLONIDINE HCL [Concomitant]
     Route: 048
  16. MEGACE [Concomitant]
     Route: 048
     Dates: end: 20040806
  17. CORTEF [Concomitant]
     Route: 048
  18. PROTONIX [Concomitant]
  19. COUMADIN [Concomitant]
  20. LANTUS [Concomitant]
     Dosage: DOSE UNIT: UNITS
  21. HUMALOG [Concomitant]
     Dosage: DOSE: SLIDING SCALE
  22. LORTAB [Concomitant]
     Dosage: DOSE: NOT PROVIDED
  23. ALUMINUM HYDROXIDE AND MAGNESIUM TRISILICATE [Concomitant]
     Dosage: DOSE: NOT PROVIDED
  24. XOPENEX [Concomitant]
     Dosage: DOSE: NOT PROVIDED
  25. PROZAC [Concomitant]
     Indication: DEPRESSION
     Dosage: DOSE: NOT PROVIDED

REACTIONS (17)
  - ADRENAL HAEMORRHAGE [None]
  - ADRENAL INSUFFICIENCY [None]
  - ASTHENIA [None]
  - DIALYSIS [None]
  - ENCEPHALOPATHY [None]
  - ESCHERICHIA URINARY TRACT INFECTION [None]
  - FLANK PAIN [None]
  - GASTROINTESTINAL DISORDER POSTOPERATIVE [None]
  - GASTROINTESTINAL HAEMORRHAGE [None]
  - HAEMATEMESIS [None]
  - HAEMOGLOBIN DECREASED [None]
  - HEPARIN-INDUCED THROMBOCYTOPENIA [None]
  - HYPONATRAEMIA [None]
  - INTESTINAL INFARCTION [None]
  - INTESTINAL ISCHAEMIA [None]
  - RENAL FAILURE CHRONIC [None]
  - RESPIRATORY FAILURE [None]
